FAERS Safety Report 21459487 (Version 1)
Quarter: 2022Q4

REPORT INFORMATION
  Report Type: Spontaneous
  Country: US (occurrence: US)
  Receive Date: 20221014
  Receipt Date: 20221014
  Transmission Date: 20230113
  Serious: No
  Sender: FDA-Public Use
  Company Number: US-ORGANON-O2209USA002212

PATIENT
  Age: 49 Year
  Sex: Male

DRUGS (9)
  1. REMERON [Suspect]
     Active Substance: MIRTAZAPINE
     Indication: Cotard^s syndrome
     Dosage: 30 MILLIGRAM
     Route: 048
  2. PENICILLIN G PROCAINE [Concomitant]
     Active Substance: PENICILLIN G PROCAINE
     Indication: Neurosyphilis
     Dosage: UNK
     Route: 042
  3. OLANZAPINE [Concomitant]
     Active Substance: OLANZAPINE
     Indication: Neurosyphilis
     Dosage: NIGHTLY AT BEDTIME
  4. DONEPEZIL [Concomitant]
     Active Substance: DONEPEZIL
     Dosage: 5 MILLIGRAM DAILY
     Route: 048
  5. THIAMINE [Concomitant]
     Active Substance: THIAMINE
     Dosage: UNK
  6. FOLATE SODIUM [Concomitant]
     Active Substance: FOLATE SODIUM
     Dosage: UNK
  7. ARIPIPRAZOLE [Concomitant]
     Active Substance: ARIPIPRAZOLE
     Indication: Neurosyphilis
     Dosage: UNK
  8. VALPROIC ACID [Concomitant]
     Active Substance: VALPROIC ACID
     Indication: Neurosyphilis
     Dosage: UNK
  9. HALOPERIDOL [Concomitant]
     Active Substance: HALOPERIDOL
     Indication: Neurosyphilis
     Dosage: UNK

REACTIONS (1)
  - Product use in unapproved indication [Unknown]
